FAERS Safety Report 6641163-7 (Version None)
Quarter: 2010Q1

REPORT INFORMATION
  Report Type: 
  Country: None (occurrence: None)
  Receive Date: 20100318
  Receipt Date: 20100308
  Transmission Date: 20100710
  Serious: Yes (Other)
  Sender: FDA-Public Use
  Company Number: ES-ABBOTT-10P-144-0630933-00

PATIENT
  Age: 42 Year
  Sex: Female

DRUGS (5)
  1. HUMIRA [Suspect]
     Indication: RHEUMATOID ARTHRITIS
     Route: 058
     Dates: start: 20071022
  2. METOTREXATO [Interacting]
     Indication: RHEUMATOID ARTHRITIS
     Route: 058
     Dates: start: 20060101
  3. AMOXICILINA + CLAVULANICO [Interacting]
     Indication: ANTIBIOTIC PROPHYLAXIS
     Route: 048
     Dates: start: 20091205, end: 20091212
  4. ACFOL [Concomitant]
     Indication: FOLATE DEFICIENCY
     Route: 048
     Dates: start: 20070101
  5. AIRTAL [Concomitant]
     Indication: DRUG USE FOR UNKNOWN INDICATION
     Route: 048

REACTIONS (3)
  - AMENORRHOEA [None]
  - HEPATITIS ACUTE [None]
  - VERTIGO [None]
